FAERS Safety Report 7649933-3 (Version None)
Quarter: 2011Q3

REPORT INFORMATION
  Report Type: 
  Country: None (occurrence: None)
  Receive Date: 20110802
  Receipt Date: 20110720
  Transmission Date: 20111222
  Serious: Yes (Hospitalization, Other)
  Sender: FDA-Public Use
  Company Number: US-ASTRAZENECA-2008UW01511

PATIENT
  Age: 17252 Day
  Sex: Female
  Weight: 68 kg

DRUGS (31)
  1. TOPROL-XL [Concomitant]
  2. AMBIEN [Concomitant]
  3. NASONEX [Concomitant]
  4. FIORINAL [Concomitant]
  5. OXYCODONE HCL [Concomitant]
  6. SEROQUEL [Suspect]
     Indication: DEPRESSION
     Dosage: VARIOUS DOSES, 100 MG
     Route: 048
     Dates: start: 20010801, end: 20070601
  7. AMARYL [Concomitant]
  8. NOVOLOG [Concomitant]
  9. DIOVAN [Concomitant]
  10. PHEN-FEN [Concomitant]
     Indication: WEIGHT CONTROL
     Route: 048
     Dates: start: 19980101
  11. PHENERGAN HCL [Concomitant]
  12. PREDNISONE TAB [Concomitant]
  13. ZOLOFT [Concomitant]
     Dates: start: 20050101
  14. FOSAMAX [Concomitant]
  15. ATIVAN [Concomitant]
  16. VERELAN [Concomitant]
  17. PREVACID [Concomitant]
  18. AVAPRO [Concomitant]
  19. EFFEXOR [Concomitant]
  20. PRIMIDONE [Concomitant]
  21. VALIUM [Concomitant]
  22. LIPITOR [Concomitant]
  23. LEXAPRO [Concomitant]
  24. REQUIP [Concomitant]
  25. WELLBUTRIN [Concomitant]
     Dates: start: 20010101
  26. ASPIRIN [Concomitant]
  27. INDERAL [Concomitant]
  28. TRAZODONE HYDROCHLORIDE [Concomitant]
  29. SEROQUEL [Suspect]
     Dosage: 100 - 200 MG
     Route: 048
     Dates: start: 20030927
  30. CLONIDINE [Concomitant]
  31. LANTUS [Concomitant]

REACTIONS (9)
  - CONVULSION [None]
  - MITRAL VALVE PROLAPSE [None]
  - BLOOD TRIGLYCERIDES INCREASED [None]
  - CHEST PAIN [None]
  - DIABETES MELLITUS [None]
  - HYPERLIPIDAEMIA [None]
  - CORONARY ARTERY DISEASE [None]
  - BLOOD CHOLESTEROL INCREASED [None]
  - CARDIAC DISORDER [None]
